FAERS Safety Report 4929238-1 (Version None)
Quarter: 2006Q1

REPORT INFORMATION
  Report Type: 
  Country: None (occurrence: None)
  Receive Date: 20060301
  Receipt Date: 20051015
  Transmission Date: 20060701
  Serious: Yes (Disabling)
  Sender: FDA-Public Use
  Company Number: 2005AP05718

PATIENT
  Age: 8814 Day
  Sex: Female

DRUGS (5)
  1. ZOLADEX [Suspect]
     Indication: ENDOMETRIOSIS
     Route: 058
     Dates: start: 20050613
  2. KAMI-SHOYO-SAN [Concomitant]
     Route: 048
     Dates: start: 20050730
  3. AMOXAN [Concomitant]
     Indication: AFFECTIVE DISORDER
     Route: 048
  4. SOLANEX [Concomitant]
     Indication: AFFECTIVE DISORDER
     Route: 048
  5. VOLTAREN [Concomitant]
     Indication: DYSMENORRHOEA
     Route: 048

REACTIONS (2)
  - PANIC DISORDER [None]
  - PIGMENTATION DISORDER [None]
